FAERS Safety Report 5416758-9 (Version None)
Quarter: 2007Q3

REPORT INFORMATION
  Report Type: 
  Country: None (occurrence: None)
  Receive Date: 20070815
  Receipt Date: 20070815
  Transmission Date: 20080115
  Serious: Yes (Other)
  Sender: FDA-Public Use
  Company Number: None

PATIENT
  Age: 64 Year
  Sex: Female
  Weight: 49.8957 kg

DRUGS (1)
  1. DEPO-MEDROL [Suspect]
     Indication: PAIN
     Dosage: 80 MG. ONE INJECTION EPIDURAL
     Route: 008
     Dates: start: 20061215, end: 20061215

REACTIONS (4)
  - CONDITION AGGRAVATED [None]
  - DRUG INEFFECTIVE [None]
  - INJECTION SITE PAIN [None]
  - PAIN [None]
